FAERS Safety Report 8265922-2 (Version None)
Quarter: 2012Q2

REPORT INFORMATION
  Report Type: 
  Country: None (occurrence: None)
  Receive Date: 20120406
  Receipt Date: 20120330
  Transmission Date: 20120825
  Serious: Yes (Death, Hospitalization, Other)
  Sender: FDA-Public Use
  Company Number: JP-CELGENEUS-087-21880-11012695

PATIENT
  Sex: Female
  Weight: 38.1 kg

DRUGS (39)
  1. REVLIMID [Suspect]
     Dosage: 5 MILLIGRAM
     Route: 048
     Dates: start: 20101209, end: 20101213
  2. DEXAMETHASONE ACETATE [Suspect]
     Dosage: 12 MILLIGRAM
     Route: 048
     Dates: start: 20110125, end: 20110125
  3. EPADEL S [Concomitant]
     Dosage: 1200 MILLIGRAM
     Route: 048
     Dates: start: 20101120, end: 20110411
  4. DEXAMETHASONE ACETATE [Suspect]
     Dosage: 12 MILLIGRAM
     Route: 048
     Dates: start: 20110404, end: 20110404
  5. LANSOPRAZOLE [Concomitant]
     Indication: PROPHYLAXIS
     Dosage: 15 MILLIGRAM
     Route: 048
     Dates: start: 20101120, end: 20110411
  6. EVISTA [Concomitant]
     Indication: OSTEOPOROSIS
     Dosage: 60 MILLIGRAM
     Route: 048
     Dates: start: 20101120, end: 20110411
  7. REVLIMID [Suspect]
     Dosage: 5 MILLIGRAM
     Route: 048
     Dates: start: 20110118, end: 20110122
  8. REVLIMID [Suspect]
     Dosage: 5 MILLIGRAM
     Route: 048
     Dates: start: 20110128, end: 20110203
  9. REVLIMID [Suspect]
     Dosage: 5 MILLIGRAM
     Route: 048
     Dates: start: 20110305, end: 20110314
  10. DEXAMETHASONE ACETATE [Suspect]
     Dosage: 12 MILLIGRAM
     Route: 048
     Dates: start: 20110118, end: 20110118
  11. DEXAMETHASONE ACETATE [Suspect]
     Dosage: 12 MILLIGRAM
     Route: 048
     Dates: start: 20110320, end: 20110320
  12. DEXAMETHASONE ACETATE [Suspect]
     Dosage: 12 MILLIGRAM
     Route: 048
     Dates: start: 20110327, end: 20110327
  13. COTRIM [Concomitant]
     Indication: PROPHYLAXIS
     Dosage: 80 MILLIGRAM
     Route: 048
     Dates: start: 20101120, end: 20110411
  14. REVLIMID [Suspect]
     Dosage: 5 MILLIGRAM
     Route: 048
     Dates: start: 20110209, end: 20110215
  15. REVLIMID [Suspect]
     Dosage: 5 MILLIGRAM
     Route: 048
     Dates: start: 20110221, end: 20110227
  16. DEXAMETHASONE ACETATE [Suspect]
     Dosage: 12 MILLIGRAM
     Route: 048
     Dates: start: 20101229, end: 20101229
  17. DEXAMETHASONE ACETATE [Suspect]
     Dosage: 12 MILLIGRAM
     Route: 048
     Dates: start: 20110221, end: 20110221
  18. DEXAMETHASONE ACETATE [Suspect]
     Dosage: 12 MILLIGRAM
     Route: 048
     Dates: start: 20110312, end: 20110312
  19. AMLODIPINE [Concomitant]
     Indication: HYPERTENSION
     Dosage: 2.5 MILLIGRAM
     Route: 048
     Dates: start: 20101120, end: 20110411
  20. REVLIMID [Suspect]
     Indication: MULTIPLE MYELOMA
     Dosage: 5 MILLIGRAM
     Route: 048
     Dates: start: 20101120, end: 20101125
  21. REVLIMID [Suspect]
     Dosage: 5 MILLIGRAM
     Route: 048
     Dates: start: 20101229, end: 20110102
  22. DEXAMETHASONE ACETATE [Suspect]
     Indication: MULTIPLE MYELOMA
     Dosage: 12 MILLIGRAM
     Route: 048
     Dates: start: 20101120, end: 20101120
  23. DEXAMETHASONE ACETATE [Suspect]
     Dosage: 4 MILLIGRAM
     Route: 048
     Dates: start: 20101130, end: 20101130
  24. DEXAMETHASONE ACETATE [Suspect]
     Dosage: 12 MILLIGRAM
     Route: 048
     Dates: start: 20101219, end: 20101219
  25. ACETAMINOPHEN [Concomitant]
     Dosage: 800 MILLIGRAM
     Route: 048
     Dates: start: 20110107, end: 20110411
  26. LOXOPROFEN [Concomitant]
     Dosage: 60 MILLIGRAM
     Route: 048
     Dates: start: 20110319, end: 20110411
  27. REVLIMID [Suspect]
     Dosage: 5 MILLIGRAM
     Route: 048
     Dates: start: 20101219, end: 20101223
  28. REVLIMID [Suspect]
     Dosage: 5 MILLIGRAM
     Route: 048
     Dates: start: 20110108, end: 20110112
  29. REVLIMID [Suspect]
     Dosage: 5 MILLIGRAM
     Route: 048
     Dates: start: 20110320, end: 20110329
  30. REVLIMID [Suspect]
     Dosage: 5 MILLIGRAM
     Route: 048
     Dates: start: 20110404, end: 20110411
  31. DEXAMETHASONE ACETATE [Suspect]
     Dosage: 12 MILLIGRAM
     Route: 048
     Dates: start: 20110128, end: 20110128
  32. DEXAMETHASONE ACETATE [Suspect]
     Dosage: 12 MILLIGRAM
     Route: 048
     Dates: start: 20110209, end: 20110209
  33. DEXAMETHASONE ACETATE [Suspect]
     Dosage: 12 MILLIGRAM
     Route: 048
     Dates: start: 20110305, end: 20110305
  34. ITRACONAZOLE [Concomitant]
     Indication: PROPHYLAXIS
     Dosage: 150 MILLIGRAM
     Route: 048
     Dates: start: 20101120, end: 20110411
  35. FOIPAN [Concomitant]
     Indication: PROPHYLAXIS
     Dosage: 100 MILLIGRAM
     Route: 048
     Dates: start: 20101219, end: 20110411
  36. REVLIMID [Suspect]
     Dosage: 5 MILLIGRAM
     Route: 048
     Dates: start: 20101130, end: 20101204
  37. DEXAMETHASONE ACETATE [Suspect]
     Dosage: 12 MILLIGRAM
     Route: 048
     Dates: start: 20110108, end: 20110108
  38. DEXAMETHASONE ACETATE [Suspect]
     Dosage: 12 MILLIGRAM
     Route: 048
     Dates: end: 20110411
  39. REBAMIPIDE [Concomitant]
     Indication: GASTRITIS
     Dosage: 300 MILLIGRAM
     Route: 048
     Dates: start: 20110305, end: 20110411

REACTIONS (5)
  - PANCREATITIS [None]
  - BRONCHITIS [None]
  - THROMBOSIS [None]
  - NEUTROPHIL COUNT DECREASED [None]
  - PLATELET COUNT DECREASED [None]
